FAERS Safety Report 9181010 (Version 1)
Quarter: 2013Q1

REPORT INFORMATION
  Report Type: Spontaneous
  Country: CO (occurrence: CO)
  Receive Date: 20130322
  Receipt Date: 20130322
  Transmission Date: 20140127
  Serious: Yes (Death, Hospitalization, Other)
  Sender: FDA-Public Use
  Company Number: PHHY2013CO027891

PATIENT
  Sex: Male
  Weight: 50 kg

DRUGS (4)
  1. EXELON PATCH [Suspect]
     Indication: PARKINSON^S DISEASE
     Dosage: 18 MG, DAILY
     Route: 062
     Dates: start: 201301
  2. EXELON PATCH [Suspect]
     Indication: SENILE DEMENTIA
  3. WARFARIN [Concomitant]
  4. IRBESARTAN [Concomitant]

REACTIONS (3)
  - Pneumonia [Fatal]
  - Cerebral haemorrhage [Fatal]
  - Subarachnoid haemorrhage [Unknown]
